FAERS Safety Report 19828130 (Version 1)
Quarter: 2021Q3

REPORT INFORMATION
  Report Type: Spontaneous
  Country: IT (occurrence: IT)
  Receive Date: 20210914
  Receipt Date: 20210914
  Transmission Date: 20211014
  Serious: Yes (Death, Other)
  Sender: FDA-Public Use
  Company Number: IT-ASTRAZENECA-2021A715180

PATIENT
  Sex: Female

DRUGS (3)
  1. OSIMERTINIB. [Suspect]
     Active Substance: OSIMERTINIB
     Route: 048
     Dates: end: 201911
  2. GEFITINIB. [Suspect]
     Active Substance: GEFITINIB
     Indication: LUNG ADENOCARCINOMA
     Route: 048
  3. PEMETREXED/CARBOPLATIN [Concomitant]
     Indication: CHEMOTHERAPY
     Dosage: FOUR CYCLES

REACTIONS (6)
  - EGFR gene mutation [Unknown]
  - Gene mutation [Unknown]
  - Malignant neoplasm progression [Fatal]
  - Drug resistance [Unknown]
  - Metastases to liver [Unknown]
  - Metastases to lung [Unknown]

NARRATIVE: CASE EVENT DATE: 201605
